FAERS Safety Report 18576664 (Version 1)
Quarter: 2020Q4

REPORT INFORMATION
  Report Type: Spontaneous
  Country: US (occurrence: US)
  Receive Date: 20201203
  Receipt Date: 20201203
  Transmission Date: 20210114
  Serious: Yes (Other)
  Sender: FDA-Public Use
  Company Number: US-PURDUE PHARMA-USA-2020-0180622

PATIENT
  Age: 24 Year
  Sex: Female

DRUGS (2)
  1. XANAX [Suspect]
     Active Substance: ALPRAZOLAM
     Indication: PRODUCT USED FOR UNKNOWN INDICATION
     Route: 065
  2. OXYCODONE HYDROCHLORIDE (SIMILAR TO NDA 22-272) [Suspect]
     Active Substance: OXYCODONE HYDROCHLORIDE
     Indication: PRODUCT USED FOR UNKNOWN INDICATION
     Route: 048

REACTIONS (8)
  - Impaired driving ability [Unknown]
  - Dysarthria [Unknown]
  - Miosis [Unknown]
  - Ocular hyperaemia [Unknown]
  - Emotional distress [Unknown]
  - Loss of consciousness [Unknown]
  - Balance disorder [Unknown]
  - Child neglect [Unknown]

NARRATIVE: CASE EVENT DATE: 20201128
